FAERS Safety Report 9382675 (Version 2)
Quarter: 2013Q3

REPORT INFORMATION
  Report Type: Spontaneous
  Country: JP (occurrence: JP)
  Receive Date: 20130703
  Receipt Date: 20130807
  Transmission Date: 20140515
  Serious: Yes (Hospitalization)
  Sender: FDA-Public Use
  Company Number: JP-GLAXOSMITHKLINE-B0894338A

PATIENT
  Age: 73 Year
  Sex: Male
  Weight: 59 kg

DRUGS (3)
  1. VALTREX [Suspect]
     Indication: HERPES ZOSTER
     Dosage: 1000MG THREE TIMES PER DAY
     Route: 048
     Dates: start: 20130518, end: 20130521
  2. BLOPRESS [Suspect]
     Indication: CARDIAC FAILURE
     Dosage: 8MG PER DAY
     Route: 048
     Dates: end: 20130521
  3. LOXONIN [Concomitant]
     Route: 048

REACTIONS (4)
  - Renal failure acute [Recovered/Resolved]
  - Renal impairment [Recovering/Resolving]
  - Renal impairment [Recovering/Resolving]
  - Nephropathy [Unknown]
